FAERS Safety Report 9907083 (Version 1)
Quarter: 2014Q1

REPORT INFORMATION
  Report Type: Spontaneous
  Country: DE (occurrence: DE)
  Receive Date: 20140218
  Receipt Date: 20140218
  Transmission Date: 20141002
  Serious: Yes (Other)
  Sender: FDA-Public Use
  Company Number: DE-UCBSA-112850

PATIENT
  Sex: Female
  Weight: 47 kg

DRUGS (2)
  1. CIMZIA [Suspect]
     Indication: CROHN^S DISEASE
     Dates: start: 201308
  2. CIMZIA [Suspect]
     Indication: PSORIATIC ARTHROPATHY
     Dates: start: 201308

REACTIONS (5)
  - Pruritus [Unknown]
  - Weight decreased [Unknown]
  - Dermatitis [Unknown]
  - Influenza [Unknown]
  - Infection [Recovered/Resolved]
